FAERS Safety Report 6636354-5 (Version None)
Quarter: 2010Q1

REPORT INFORMATION
  Report Type: 
  Country: None (occurrence: None)
  Receive Date: 20100316
  Receipt Date: 20100304
  Transmission Date: 20100710
  Serious: Yes (Other)
  Sender: FDA-Public Use
  Company Number: US-ROCHE-649305

PATIENT
  Sex: Female
  Weight: 61.2 kg

DRUGS (3)
  1. ACCUTANE [Suspect]
     Indication: ACNE
     Route: 065
     Dates: start: 19880701, end: 19880901
  2. ACCUTANE [Suspect]
     Route: 065
     Dates: start: 19950815, end: 19960201
  3. TRIPHASIL-21 [Concomitant]

REACTIONS (13)
  - ARTHRALGIA [None]
  - CROHN'S DISEASE [None]
  - DEPRESSION [None]
  - DERMATITIS CONTACT [None]
  - INFLAMMATORY BOWEL DISEASE [None]
  - LYMPHOPENIA [None]
  - MYALGIA [None]
  - RESPIRATORY TRACT INFECTION [None]
  - SKIN IRRITATION [None]
  - SKIN PAPILLOMA [None]
  - STRESS [None]
  - SUICIDAL IDEATION [None]
  - URTICARIA [None]
